FAERS Safety Report 10157169 (Version 2)
Quarter: 2014Q2

REPORT INFORMATION
  Report Type: Spontaneous
  Country: US (occurrence: US)
  Receive Date: 20140507
  Receipt Date: 20140606
  Transmission Date: 20141212
  Serious: Yes (Death, Hospitalization)
  Sender: FDA-Public Use
  Company Number: US-PFIZER INC-2014123578

PATIENT
  Sex: Male

DRUGS (1)
  1. XALKORI [Suspect]
     Indication: LUNG NEOPLASM MALIGNANT
     Dosage: 250 MG, 2X/DAY (BID)
     Route: 048
     Dates: start: 20140301

REACTIONS (4)
  - Disease progression [Fatal]
  - Lung neoplasm malignant [Fatal]
  - Pneumonitis [Unknown]
  - Pulmonary embolism [Unknown]
